FAERS Safety Report 9012306 (Version 1)
Quarter: 2012Q4

REPORT INFORMATION
  Report Type: Spontaneous
  Country: US (occurrence: None)
  Receive Date: 20121231
  Receipt Date: 20121231
  Transmission Date: 20130627
  Serious: Yes (Hospitalization)
  Sender: FDA-Public Use
  Company Number: CIO12025444

PATIENT
  Sex: Female

DRUGS (1)
  1. PEPTO-BISMOL ADULT, FORM/VERSION/FLAVOR UNKNOWN (BISMOUTH SUBSALICYLATE 262 OR 525 MG, CALCIUM CARBONATE UNKNOWN UNK) UNKNOWN, 1DF [Suspect]
     Indication: GASTROINTESTINAL DISORDER
     Dosage: Unk dose, 8/day, Oral
     Dates: start: 20121211, end: 20121213

REACTIONS (4)
  - Tinnitus [None]
  - Deafness [None]
  - Gait disturbance [None]
  - Vomiting [None]
